FAERS Safety Report 13981421 (Version 1)
Quarter: 2017Q3

REPORT INFORMATION
  Report Type: Spontaneous
  Country: US (occurrence: US)
  Receive Date: 20170918
  Receipt Date: 20170918
  Transmission Date: 20171128
  Serious: No
  Sender: FDA-Public Use
  Company Number: US-PFIZER INC-2017398723

PATIENT
  Age: 84 Year
  Sex: Female

DRUGS (1)
  1. ADVIL [Suspect]
     Active Substance: IBUPROFEN
     Indication: PAIN
     Dosage: 2 DF, 2X/DAY (TWO ADVIL IN THE MORNING AND TWO ADVIL IN THE AFTERNOON)

REACTIONS (1)
  - Drug ineffective [Unknown]
